FAERS Safety Report 9847457 (Version 1)
Quarter: 2014Q1

REPORT INFORMATION
  Report Type: Spontaneous
  Country: US (occurrence: US)
  Receive Date: 20140127
  Receipt Date: 20140127
  Transmission Date: 20141002
  Serious: No
  Sender: FDA-Public Use
  Company Number: US-SANOFI-AVENTIS-2013SA029962

PATIENT
  Age: 5 Year
  Sex: Male

DRUGS (1)
  1. DRISDOL [Suspect]
     Indication: VITAMIN D DEFICIENCY
     Dosage: TAKEN FROM 8 WEEKS  ONE PILL PER WEEK .

REACTIONS (1)
  - Abnormal behaviour [Unknown]
